FAERS Safety Report 14310754 (Version 1)
Quarter: 2017Q4

REPORT INFORMATION
  Report Type: Spontaneous
  Country: US (occurrence: US)
  Receive Date: 20171220
  Receipt Date: 20171220
  Transmission Date: 20180321
  Serious: No
  Sender: FDA-Public Use
  Company Number: US-BIOGEN-2017BI00495993

PATIENT
  Sex: Female

DRUGS (1)
  1. SPINRAZA [Suspect]
     Active Substance: NUSINERSEN
     Indication: SPINAL MUSCULAR ATROPHY
     Dosage: LOADING DOSES: THREE LOADING DOSES OF 12 MILLIGRAMS, INTRATHECAL, 1 PER 14 DAYS FOLLOWED BY A FOU...
     Route: 037
     Dates: start: 20170315

REACTIONS (2)
  - Hypotonia [Recovered/Resolved]
  - Weight bearing difficulty [Recovered/Resolved]
